FAERS Safety Report 5976471-6 (Version None)
Quarter: 2008Q4

REPORT INFORMATION
  Report Type: 
  Country: None (occurrence: None)
  Receive Date: 20081126
  Receipt Date: 20081112
  Transmission Date: 20090506
  Serious: Yes (Hospitalization)
  Sender: FDA-Public Use
  Company Number: 2008AL010789

PATIENT
  Age: 83 Year
  Sex: Female

DRUGS (13)
  1. DIGOXIN [Suspect]
     Dosage: 0.125MG, MON-WED-FRI, PO
     Route: 048
  2. TOPROL-XL [Concomitant]
  3. CARDIZEM [Concomitant]
  4. LASIX [Concomitant]
  5. ROCEPHIN [Concomitant]
  6. LOVENOX [Concomitant]
  7. PROTONIX [Concomitant]
  8. RESTORIL [Concomitant]
  9. VITAMIN D [Concomitant]
  10. CALCIUM [Concomitant]
  11. COUMADIN [Concomitant]
  12. POTASSIUM CHLORIDE [Concomitant]
  13. GLIMEPIRIDE [Concomitant]

REACTIONS (8)
  - BLOOD PRESSURE SYSTOLIC INCREASED [None]
  - DEHYDRATION [None]
  - DYSPNOEA EXERTIONAL [None]
  - HYPOTENSION [None]
  - INJURY [None]
  - PRESYNCOPE [None]
  - RENAL FAILURE ACUTE [None]
  - THERAPEUTIC AGENT TOXICITY [None]
